FAERS Safety Report 25031624 (Version 2)
Quarter: 2025Q1

REPORT INFORMATION
  Report Type: Report from Study
  Country: CN (occurrence: CN)
  Receive Date: 20250303
  Receipt Date: 20250310
  Transmission Date: 20250408
  Serious: Yes (Hospitalization)
  Sender: EISAI
  Company Number: CN-Eisai-EC-2025-185009

PATIENT
  Age: 58 Year
  Sex: Male
  Weight: 58 kg

DRUGS (9)
  1. LENVATINIB [Suspect]
     Active Substance: LENVATINIB
     Indication: Hepatic cancer
     Dates: start: 20211216, end: 20220217
  2. LENVATINIB [Suspect]
     Active Substance: LENVATINIB
     Dates: start: 20220308
  3. TORIPALIMAB [Suspect]
     Active Substance: TORIPALIMAB
     Indication: Hepatic cancer
     Dosage: /PLACEBO
     Dates: start: 20211216
  4. ENTECAVIR [Concomitant]
     Active Substance: ENTECAVIR
     Indication: Hepatitis B
  5. LEVOTHYROXINE SODIUM [Concomitant]
     Active Substance: LEVOTHYROXINE SODIUM
     Indication: Blood thyroid stimulating hormone increased
  6. COMPOUND DIGESTIVE ENZYME [BIODIASTASE;CELLULASE;DIMETICONE;LIPASE;PAN [Concomitant]
     Indication: Change of bowel habit
  7. TRIMEBUTINE MALEATE [Concomitant]
     Active Substance: TRIMEBUTINE MALEATE
     Indication: Change of bowel habit
  8. ELEVATE PLATELET CAPSULE [Concomitant]
     Indication: Platelet count decreased
     Dates: start: 20250125
  9. LIVE COMBINED BACILLUS SUBTILIS AND ENTEROCOCCUS FAECIUM [Concomitant]
     Indication: Change of bowel habit
     Dates: start: 20250102

REACTIONS (1)
  - Hypokalaemia [Recovered/Resolved]

NARRATIVE: CASE EVENT DATE: 20250216
